FAERS Safety Report 8736531 (Version 3)
Quarter: 2013Q2

REPORT INFORMATION
  Report Type: Report from Study
  Country: NL (occurrence: NL)
  Receive Date: 20120822
  Receipt Date: 20130603
  Transmission Date: 20140414
  Serious: Yes (Death, Hospitalization, Other)
  Sender: FDA-Public Use
  Company Number: PHHO2012NL011923

PATIENT
  Age: 63 Year
  Sex: Male
  Weight: 82.8 kg

DRUGS (8)
  1. ENALAPRIL [Suspect]
     Indication: CARDIAC FAILURE
     Dosage: UNK
     Route: 048
     Dates: start: 20091110, end: 20120711
  2. BUMETANIDE [Suspect]
     Indication: CARDIAC FAILURE
     Dosage: 3 MG, TID
     Route: 048
     Dates: start: 20120714, end: 20120821
  3. SPIRONOLACTONE [Concomitant]
     Indication: CARDIAC FAILURE
     Dosage: 12.5 MG, SAILY
     Route: 048
     Dates: end: 20120724
  4. SPIRONOLACTONE [Concomitant]
     Dosage: 25 MG, QD
     Route: 048
     Dates: start: 20120724, end: 20120821
  5. SPIRONOLACTONE [Concomitant]
     Dosage: 50 MG, QD
     Route: 048
     Dates: start: 20120822
  6. BURINEX [Concomitant]
     Indication: CARDIAC FAILURE
     Dosage: 3 MG, TID
     Route: 048
  7. METOPROLOL [Concomitant]
     Indication: CARDIAC FAILURE
     Dosage: 50 MG, DAILY
     Route: 048
     Dates: end: 20120724
  8. METOPROLOL [Concomitant]
     Dosage: 25 MG, BID
     Route: 048
     Dates: start: 20120724

REACTIONS (2)
  - Cardiac failure [Fatal]
  - Renal disorder [Unknown]
